FAERS Safety Report 14123513 (Version 1)
Quarter: 2017Q4

REPORT INFORMATION
  Report Type: Spontaneous
  Country: US (occurrence: None)
  Receive Date: 20171025
  Receipt Date: 20171025
  Transmission Date: 20180321
  Serious: Yes (Hospitalization)
  Sender: FDA-Public Use
  Company Number: None

PATIENT
  Age: 12 Year
  Sex: Male
  Weight: 42.4 kg

DRUGS (9)
  1. VINCRISTINE SULFATE. [Suspect]
     Active Substance: VINCRISTINE SULFATE
     Dates: end: 20091202
  2. CARBOPLATIN. [Suspect]
     Active Substance: CARBOPLATIN
     Dates: end: 20091121
  3. BACTRIM [Concomitant]
     Active Substance: SULFAMETHOXAZOLE\TRIMETHOPRIM
  4. ZOFRAN [Concomitant]
     Active Substance: ONDANSETRON HYDROCHLORIDE
  5. NOVOLOG [Concomitant]
     Active Substance: INSULIN ASPART
  6. MAGNESIUM [Concomitant]
     Active Substance: MAGNESIUM
  7. LANTUS [Concomitant]
     Active Substance: INSULIN GLARGINE
  8. PREVACID [Concomitant]
     Active Substance: LANSOPRAZOLE
  9. ISOTRETINOIN. [Suspect]
     Active Substance: ISOTRETINOIN
     Dates: end: 20091215

REACTIONS (7)
  - Hypercalcaemia [None]
  - Retinal exudates [None]
  - Dry eye [None]
  - Vision blurred [None]
  - Macular oedema [None]
  - Retinal haemorrhage [None]
  - Retinopathy haemorrhagic [None]

NARRATIVE: CASE EVENT DATE: 20091118
